FAERS Safety Report 5286730-0 (Version None)
Quarter: 2007Q1

REPORT INFORMATION
  Report Type: 
  Country: None (occurrence: None)
  Receive Date: 20070116
  Receipt Date: 20061023
  Transmission Date: 20070707
  Serious: No
  Sender: FDA-Public Use
  Company Number: 2006SP004030

PATIENT
  Age: 74 Year
  Sex: Male
  Weight: 90.7194 kg

DRUGS (6)
  1. LUNESTA [Suspect]
     Indication: SLEEP DISORDER
     Dosage: 3 MG; HS; ORAL
     Route: 048
     Dates: start: 20060219, end: 20060225
  2. SIMVASTATIN [Concomitant]
  3. CYMBALTA [Concomitant]
  4. ZETIA [Concomitant]
  5. PLAVIX [Concomitant]
  6. VYTORIN [Concomitant]

REACTIONS (1)
  - MIDDLE INSOMNIA [None]
